FAERS Safety Report 12550599 (Version 1)
Quarter: 2016Q3

REPORT INFORMATION
  Report Type: Other
  Country: None (occurrence: US)
  Receive Date: 20160712
  Receipt Date: 20160712
  Transmission Date: 20161109
  Serious: Yes (Other)
  Sender: FDA-Public Use
  Company Number: US-GUTHY-RENKER LLC-1054980

PATIENT
  Age: 38 Year
  Sex: Female

DRUGS (1)
  1. IT COSMETICS BYE BYE FOUNDATION W/SPF 50+ [Suspect]
     Active Substance: TITANIUM DIOXIDE\ZINC OXIDE
     Indication: PHOTOSENSITIVITY REACTION
     Route: 061
     Dates: start: 20160328

REACTIONS (6)
  - Swelling face [None]
  - Hypersensitivity [None]
  - Ocular hyperaemia [None]
  - Eye pruritus [None]
  - Eye swelling [None]
  - Rhinorrhoea [None]

NARRATIVE: CASE EVENT DATE: 20160328
